FAERS Safety Report 23619293 (Version 2)
Quarter: 2024Q2

REPORT INFORMATION
  Report Type: Report from Study
  Country: US (occurrence: US)
  Receive Date: 20240311
  Receipt Date: 20240507
  Transmission Date: 20240716
  Serious: Yes (Other)
  Sender: FDA-Public Use
  Company Number: US-ABBVIE-5672212

PATIENT
  Sex: Male

DRUGS (2)
  1. HUMIRA [Suspect]
     Active Substance: ADALIMUMAB
     Indication: Uveitis
     Dosage: FORM STRENGTH: 40 MG CITRATE FREE
     Route: 058
     Dates: start: 20220425
  2. HUMIRA [Suspect]
     Active Substance: ADALIMUMAB
     Dosage: FORM STRENGTH: 40 MG CITRATE FREE/LAST ADMIN DATE: APR 2022
     Route: 058
     Dates: start: 20220422

REACTIONS (7)
  - Intraocular pressure test abnormal [Unknown]
  - Gastrointestinal disorder [Not Recovered/Not Resolved]
  - Eye operation [Recovering/Resolving]
  - Headache [Unknown]
  - Vitreous floaters [Unknown]
  - Vision blurred [Not Recovered/Not Resolved]
  - Surgical failure [Unknown]

NARRATIVE: CASE EVENT DATE: 20240101
